FAERS Safety Report 7982236-6 (Version None)
Quarter: 2011Q4

REPORT INFORMATION
  Report Type: 
  Country: None (occurrence: None)
  Receive Date: 20111215
  Receipt Date: 20111215
  Transmission Date: 20120403
  Serious: Yes (Hospitalization)
  Sender: FDA-Public Use
  Company Number: None

PATIENT
  Sex: Male
  Weight: 112.03 kg

DRUGS (2)
  1. ANDROGEL [Suspect]
     Indication: HYPOGONADISM
     Dosage: 5 GRAMS
     Route: 061
     Dates: start: 20090817, end: 20111126
  2. ANDROGEL [Suspect]
     Indication: BLOOD TESTOSTERONE DECREASED
     Dosage: 5 GRAMS
     Route: 061
     Dates: start: 20090817, end: 20111126

REACTIONS (5)
  - MENTAL STATUS CHANGES [None]
  - PORTAL VEIN THROMBOSIS [None]
  - MESENTERIC VEIN THROMBOSIS [None]
  - PYREXIA [None]
  - HEPATIC FUNCTION ABNORMAL [None]
